FAERS Safety Report 5257134-1 (Version None)
Quarter: 2007Q1

REPORT INFORMATION
  Report Type: 
  Country: None (occurrence: None)
  Receive Date: 20070305
  Receipt Date: 20070216
  Transmission Date: 20070707
  Serious: Yes (Hospitalization)
  Sender: FDA-Public Use
  Company Number: 2007BM000019

PATIENT
  Age: 83 Year
  Sex: Female

DRUGS (5)
  1. PREDNISOLONE [Suspect]
     Indication: JUVENILE ARTHRITIS
     Dosage: SEE IMAGE
  2. METHYLPREDNISOLONE [Suspect]
     Dosage: 500 MG; QD; IV
     Route: 042
  3. ORAPRED (PREDNISOLONE SODIUM PHOSPHATE) SOLUTION (EXCEPT SYRUP), 20.2M [Suspect]
  4. ACETAMINOPHEN [Concomitant]
  5. LOXOPROFEN [Concomitant]

REACTIONS (3)
  - IMMUNOSUPPRESSION [None]
  - PNEUMOCYSTIS JIROVECI PNEUMONIA [None]
  - THERAPEUTIC RESPONSE DECREASED [None]
